FAERS Safety Report 16598467 (Version 1)
Quarter: 2019Q3

REPORT INFORMATION
  Report Type: Report from Study
  Country: TR (occurrence: TR)
  Receive Date: 20190719
  Receipt Date: 20190719
  Transmission Date: 20191004
  Serious: Yes (Life-Threatening, Other)
  Sender: FDA-Public Use
  Company Number: TR-RECRO GAINESVILLE LLC-REPH-2019-000132

PATIENT
  Age: 49 Year
  Sex: Female

DRUGS (1)
  1. VERAPAMIL HYDROCHLORIDE SUSTAINED RELEASE [Suspect]
     Active Substance: VERAPAMIL HYDROCHLORIDE
     Dosage: 25, 240 MILLIGRAM TABLETS, ONE TIME DOSE
     Route: 048

REACTIONS (11)
  - Bradycardia [Recovered/Resolved]
  - Hypocalcaemia [Recovered/Resolved]
  - Suicide attempt [Recovered/Resolved]
  - Pulmonary oedema [Recovered/Resolved]
  - Hyperglycaemia [Recovered/Resolved]
  - Pleural effusion [Recovered/Resolved]
  - Depressed level of consciousness [Recovered/Resolved]
  - Atrioventricular block [Recovered/Resolved]
  - Hypotension [Recovered/Resolved]
  - Vomiting [Recovered/Resolved]
  - Nausea [Recovered/Resolved]
